FAERS Safety Report 7166073-0 (Version None)
Quarter: 2010Q4

REPORT INFORMATION
  Report Type: 
  Country: None (occurrence: None)
  Receive Date: 20101216
  Receipt Date: 20101203
  Transmission Date: 20110411
  Serious: No
  Sender: FDA-Public Use
  Company Number: US-BIOGENIDEC-2010BI042965

PATIENT
  Age: 40 Year
  Sex: Male

DRUGS (1)
  1. AVONEX [Suspect]
     Indication: MULTIPLE SCLEROSIS
     Route: 030
     Dates: start: 20101104, end: 20101119

REACTIONS (5)
  - CHEST PAIN [None]
  - DIZZINESS [None]
  - FATIGUE [None]
  - NAUSEA [None]
  - OROPHARYNGEAL PAIN [None]
